FAERS Safety Report 24783843 (Version 2)
Quarter: 2025Q1

REPORT INFORMATION
  Report Type: Spontaneous
  Country: GB (occurrence: GB)
  Receive Date: 20241227
  Receipt Date: 20250217
  Transmission Date: 20250409
  Serious: Yes (Other)
  Sender: MYLAN
  Company Number: GB-MYLANLABS-2024M1114628

PATIENT
  Age: 57 Year
  Sex: Male
  Weight: 169 kg

DRUGS (7)
  1. CLOZARIL [Suspect]
     Active Substance: CLOZAPINE
     Indication: Schizophrenia
     Dosage: 275 MILLIGRAM, QD (ON)
     Route: 048
     Dates: start: 19941029
  2. ARIPIPRAZOLE [Concomitant]
     Active Substance: ARIPIPRAZOLE
     Indication: Schizophrenia
     Dosage: 10 MILLIGRAM, AM (OM)
     Route: 048
  3. ARIPIPRAZOLE [Concomitant]
     Active Substance: ARIPIPRAZOLE
     Dosage: 10 MILLIGRAM, QD
     Route: 048
     Dates: start: 20210121
  4. DAPAGLIFLOZIN [Concomitant]
     Active Substance: DAPAGLIFLOZIN
     Indication: Diabetes mellitus
     Dosage: 10 MILLIGRAM, QD
     Route: 048
     Dates: start: 20230704
  5. REBOXETINE [Concomitant]
     Active Substance: REBOXETINE
     Indication: Depression
     Dosage: 4 MILLIGRAM, QD
     Route: 048
     Dates: start: 20230213
  6. PENICILLIN [Concomitant]
     Active Substance: PENICILLIN
     Indication: Infection prophylaxis
     Dosage: 500 MILLIGRAM, BID
     Route: 048
     Dates: start: 2019
  7. ATORVASTATIN [Concomitant]
     Active Substance: ATORVASTATIN
     Indication: Disease risk factor
     Dosage: 20 MILLIGRAM, QD
     Route: 048
     Dates: start: 20230213

REACTIONS (2)
  - Bladder cancer [Unknown]
  - Anaemia [Recovering/Resolving]

NARRATIVE: CASE EVENT DATE: 20241101
